FAERS Safety Report 6390498-4 (Version None)
Quarter: 2009Q4

REPORT INFORMATION
  Report Type: 
  Country: None (occurrence: None)
  Receive Date: 20091005
  Receipt Date: 20091005
  Transmission Date: 20100525
  Serious: Yes (Hospitalization)
  Sender: FDA-Public Use
  Company Number: None

PATIENT
  Age: 62 Year
  Sex: Male

DRUGS (1)
  1. FLUORESCEIN [Suspect]
     Indication: ANGIOGRAM
     Dosage: 5 ONCE IV
     Route: 042
     Dates: start: 20090831, end: 20090831

REACTIONS (8)
  - ANAPHYLACTIC REACTION [None]
  - CARDIO-RESPIRATORY ARREST [None]
  - COUGH [None]
  - HYPERHIDROSIS [None]
  - HYPOTENSION [None]
  - IMMEDIATE POST-INJECTION REACTION [None]
  - RENAL FAILURE ACUTE [None]
  - RETCHING [None]
